FAERS Safety Report 7386038-3 (Version None)
Quarter: 2011Q1

REPORT INFORMATION
  Report Type: 
  Country: None (occurrence: None)
  Receive Date: 20110331
  Receipt Date: 20110317
  Transmission Date: 20110831
  Serious: Yes (Hospitalization, Other)
  Sender: FDA-Public Use
  Company Number: US-ELI_LILLY_AND_COMPANY-US201012003112

PATIENT
  Sex: Female
  Weight: 59.864 kg

DRUGS (2)
  1. FORTEO [Suspect]
     Indication: OSTEOPOROSIS
     Dosage: 20 UG, DAILY (1/D)
     Route: 058
     Dates: start: 20100420
  2. ACETYLSALICYLIC ACID [Concomitant]
     Dosage: 325 DF, QD

REACTIONS (7)
  - NECK DEFORMITY [None]
  - BLOOD UREA INCREASED [None]
  - CORONARY ARTERY DISEASE [None]
  - HEMIPLEGIA [None]
  - ISCHAEMIC STROKE [None]
  - OEDEMA [None]
  - HEMIPARESIS [None]
